FAERS Safety Report 13185747 (Version 7)
Quarter: 2017Q4

REPORT INFORMATION
  Report Type: Report from Study
  Country: US (occurrence: US)
  Receive Date: 20170203
  Receipt Date: 20171016
  Transmission Date: 20180320
  Serious: Yes (Hospitalization)
  Sender: FDA-Public Use
  Company Number: US-ACTELION-A-NJ2017-149354

PATIENT
  Age: 52 Year
  Sex: Female
  Weight: 63.39 kg

DRUGS (4)
  1. VELETRI [Suspect]
     Active Substance: EPOPROSTENOL
     Indication: PULMONARY HYPERTENSION
     Dosage: 42 NG/KG, PER MIN
     Route: 042
     Dates: start: 20141219
  2. VELETRI [Suspect]
     Active Substance: EPOPROSTENOL
     Dosage: 20 NG/KG, PER MIN
     Route: 042
  3. REVATIO [Concomitant]
     Active Substance: SILDENAFIL CITRATE
  4. OPSUMIT [Suspect]
     Active Substance: MACITENTAN
     Indication: PULMONARY HYPERTENSION
     Dosage: 10 MG, QD
     Route: 048
     Dates: start: 20160809

REACTIONS (14)
  - Infection [Unknown]
  - Feeling abnormal [Unknown]
  - Pneumonia [Unknown]
  - Condition aggravated [Unknown]
  - Right ventricular failure [Unknown]
  - Catheter site pain [Unknown]
  - Headache [Unknown]
  - Chest discomfort [Unknown]
  - Ascites [Not Recovered/Not Resolved]
  - Herpes virus infection [Unknown]
  - Abdominal cavity drainage [Unknown]
  - Superficial injury of eye [Unknown]
  - Eye pain [Unknown]
  - Chest pain [Not Recovered/Not Resolved]

NARRATIVE: CASE EVENT DATE: 20170409
